FAERS Safety Report 20227262 (Version 2)
Quarter: 2021Q4

REPORT INFORMATION
  Report Type: Report from Study
  Country: CN (occurrence: CN)
  Receive Date: 20211224
  Receipt Date: 20211229
  Transmission Date: 20220303
  Serious: Yes (Hospitalization)
  Sender: FDA-Public Use
  Company Number: CN-JiaLiang-5178561098058

PATIENT
  Sex: Male

DRUGS (1)
  1. DIANEAL [Suspect]
     Active Substance: CALCIUM CHLORIDE\DEXTROSE\MAGNESIUM CHLORIDE\SODIUM CHLORIDE\SODIUM LACTATE
     Indication: End stage renal disease
     Dosage: 4 BAGS
     Route: 033
     Dates: start: 20160930

REACTIONS (3)
  - Peritoneal dialysis complication [Not Recovered/Not Resolved]
  - Infection [Not Recovered/Not Resolved]
  - Peritoneal dialysis complication [Unknown]
